FAERS Safety Report 9613391 (Version 1)
Quarter: 2013Q4

REPORT INFORMATION
  Report Type: Spontaneous
  Country: US (occurrence: US)
  Receive Date: 20131010
  Receipt Date: 20131010
  Transmission Date: 20140711
  Serious: No
  Sender: FDA-Public Use
  Company Number: US-009507513-1310USA001892

PATIENT
  Age: 67 Year
  Sex: Female

DRUGS (3)
  1. ZOCOR [Suspect]
     Indication: BLOOD CHOLESTEROL INCREASED
     Dosage: UNK
     Route: 048
     Dates: start: 201204, end: 201307
  2. SIMVASTATIN TABLETS, USP [Suspect]
     Indication: BLOOD CHOLESTEROL INCREASED
     Dosage: UNK
     Route: 048
     Dates: start: 201204, end: 201307
  3. LORAZEPAM [Concomitant]

REACTIONS (2)
  - Hepatomegaly [Unknown]
  - Hepatic steatosis [Unknown]
